FAERS Safety Report 4518349-0 (Version None)
Quarter: 2004Q4

REPORT INFORMATION
  Report Type: 
  Country: None (occurrence: None)
  Receive Date: 20041202
  Receipt Date: 20041124
  Transmission Date: 20050328
  Serious: No
  Sender: FDA-Public Use
  Company Number: 210726

PATIENT
  Age: 16 Year
  Sex: Female
  Weight: 56.7 kg

DRUGS (9)
  1. XOLAIR [Suspect]
     Indication: ASTHMA
     Dosage: 150 MG, 1/MONTH, SUBCUTANEOUS
     Route: 058
     Dates: start: 20040826, end: 20041026
  2. PREDNISONE [Concomitant]
  3. SINGULAIR (MONTEKUKAST SODIUM) [Concomitant]
  4. XOPENEX [Concomitant]
  5. NEXIUM [Concomitant]
  6. ZYRTEC (CETRIZINE HYDROCHLRIDE) [Concomitant]
  7. NASACORT AQ (TRIAMCINOLONE ACETONIDE) [Concomitant]
  8. ADVAIR (SALMETEROL XINAFOATE, FLUTICASONE PROPIONATE) [Concomitant]
  9. ALBUTEROL (ALBUTEROL, ALBUTEROL SULFATE) [Concomitant]

REACTIONS (5)
  - ANGIONEUROTIC OEDEMA [None]
  - ASTHMA [None]
  - CONDITION AGGRAVATED [None]
  - LARYNGEAL OEDEMA [None]
  - SWOLLEN TONGUE [None]
